FAERS Safety Report 5654853-X (Version None)
Quarter: 2008Q1

REPORT INFORMATION
  Report Type: 
  Country: None (occurrence: None)
  Receive Date: 20080307
  Receipt Date: 20070920
  Transmission Date: 20080703
  Serious: No
  Sender: FDA-Public Use
  Company Number: A0669492A

PATIENT
  Age: 67 Year
  Sex: Female

DRUGS (20)
  1. REQUIP [Suspect]
     Indication: DRUG USE FOR UNKNOWN INDICATION
     Dosage: .25MG THREE TIMES PER DAY
     Route: 048
     Dates: start: 20060829
  2. NEXIUM [Concomitant]
     Dosage: 40MG PER DAY
     Route: 048
  3. CYMBALTA [Concomitant]
     Indication: DEPRESSION
     Dosage: 60MG PER DAY
     Route: 048
  4. ACEBUTOLOL [Concomitant]
     Dosage: 1200MG PER DAY
     Route: 048
  5. WELCHOL [Concomitant]
     Dosage: 1250MG PER DAY
     Route: 048
  6. METOLAZONE [Concomitant]
     Indication: HYPERTENSION
     Dosage: 20MG PER DAY
     Route: 048
  7. CAPTOPRESS [Concomitant]
     Indication: HYPERTENSION
     Dosage: .2MG PER DAY
     Route: 062
  8. COZAAR [Concomitant]
     Indication: HYPERTENSION
     Dosage: 100MG PER DAY
     Route: 048
  9. GUAIFENESIN + PSEUDOEPHEDRINE [Concomitant]
     Indication: UPPER RESPIRATORY TRACT INFECTION
     Route: 048
  10. HUMULIN 70/30 [Concomitant]
     Dosage: 36UG TWICE PER DAY
     Route: 058
  11. CLARINEX [Concomitant]
     Indication: UPPER RESPIRATORY TRACT INFECTION
     Dosage: 5MG PER DAY
     Route: 048
  12. NITROGLYCERIN [Concomitant]
     Indication: PAIN
     Dosage: 4MG PER DAY
     Route: 060
  13. POTASSIUM CHLORIDE [Concomitant]
     Dosage: 30MG PER DAY
     Route: 048
  14. PLAVIX [Concomitant]
     Dosage: 75MG PER DAY
     Route: 048
  15. ZETIA [Concomitant]
     Dosage: 10MG PER DAY
     Route: 048
  16. RANEXA [Concomitant]
     Indication: PAIN
     Dosage: 500MG TWICE PER DAY
     Route: 048
  17. SPIRIVA [Concomitant]
     Indication: CHRONIC OBSTRUCTIVE PULMONARY DISEASE
     Route: 055
  18. NASONEX [Concomitant]
     Indication: UPPER RESPIRATORY TRACT INFECTION
     Dosage: 2SPR TWICE PER DAY
     Route: 045
  19. ADVAIR DISKUS 100/50 [Concomitant]
     Indication: CHRONIC OBSTRUCTIVE PULMONARY DISEASE
     Dosage: 1PUFF TWICE PER DAY
     Route: 055
  20. LANTUS [Concomitant]
     Dosage: 75UG AT NIGHT
     Route: 058

REACTIONS (1)
  - URINE ARSENIC INCREASED [None]
